FAERS Safety Report 8612459 (Version 4)
Quarter: 2012Q4

REPORT INFORMATION
  Report Type: Report from Study
  Country: CA (occurrence: CA)
  Receive Date: 20120613
  Receipt Date: 20121109
  Transmission Date: 20130627
  Serious: Yes (Other)
  Sender: FDA-Public Use
  Company Number: CA-ABBOTT-12P-028-0943639-00

PATIENT
  Sex: Male
  Weight: 56.75 kg

DRUGS (10)
  1. KALETRA TABLETS 200MG/50MG [Suspect]
     Indication: HIV INFECTION
     Dosage: 2 in 1 D, Daily dose:800mg/200mg
     Route: 048
     Dates: start: 20090520, end: 20120601
  2. KALETRA TABLETS 200MG/50MG [Suspect]
     Indication: ANTIRETROVIRAL THERAPY
  3. NORVIR [Suspect]
     Route: 048
  4. AMITRIPTYLINE [Concomitant]
     Indication: PRODUCT USED FOR UNKNOWN INDICATION
     Dosage: At bed time
     Route: 048
  5. METOPROLOL [Concomitant]
     Indication: PRODUCT USED FOR UNKNOWN INDICATION
     Dosage: 1/3 of 50mg tablet twice per day
     Route: 048
  6. LORAZEPAM [Concomitant]
     Indication: PRODUCT USED FOR UNKNOWN INDICATION
     Dosage: At bed time
     Route: 048
  7. RAMIPRIL [Concomitant]
     Indication: PRODUCT USED FOR UNKNOWN INDICATION
     Route: 048
  8. MIRTAZAPINE [Concomitant]
     Indication: PRODUCT USED FOR UNKNOWN INDICATION
     Dosage: 1/2 of 30mg tablet at bed time
     Route: 048
  9. PREZISTA [Concomitant]
     Indication: PRODUCT USED FOR UNKNOWN INDICATION
     Dosage: 1 TAB QD
  10. TRUVADA [Concomitant]
     Indication: PRODUCT USED FOR UNKNOWN INDICATION
     Dosage: 200/300 MG DAILY

REACTIONS (3)
  - Rectal cancer [Unknown]
  - Anal skin tags [Unknown]
  - Abdominal pain upper [Unknown]
